FAERS Safety Report 25608385 (Version 1)
Quarter: 2025Q3

REPORT INFORMATION
  Report Type: Spontaneous
  Country: EU (occurrence: EU)
  Receive Date: 20250726
  Receipt Date: 20250726
  Transmission Date: 20251021
  Serious: Yes (Hospitalization)
  Sender: ACCORD
  Company Number: None

PATIENT
  Age: 96 Year
  Sex: Female
  Weight: 53.4 kg

DRUGS (8)
  1. CLOZAPINE [Suspect]
     Active Substance: CLOZAPINE
     Indication: Psychotic disorder
     Dates: start: 20250428, end: 20250429
  2. BISOPROLOL [Concomitant]
     Active Substance: BISOPROLOL
     Indication: Hypertension
     Dosage: STRENGTH: 1.25 MG
     Dates: start: 20250109
  3. CANDESARTAN [Concomitant]
     Active Substance: CANDESARTAN
     Indication: Hypertension
     Dosage: STRENGTH: 8 MG, SCORED TABLET
     Dates: start: 20250109
  4. LERCANIDIPINE [Concomitant]
     Active Substance: LERCANIDIPINE
     Indication: Hypertension
     Dates: start: 20250109
  5. GABAPENTIN [Concomitant]
     Active Substance: GABAPENTIN
     Indication: Neuralgia
     Dosage: STRENGTH: 300 MG
     Dates: start: 20250109
  6. PAROXETINE [Concomitant]
     Active Substance: PAROXETINE
     Indication: Anxiety
     Dosage: STRENGTH: 20 MG
     Dates: start: 20250109
  7. DOLIPRANE [Concomitant]
     Active Substance: ACETAMINOPHEN
     Indication: Pain
     Dosage: STRENGTH: 500 MG
     Dates: start: 20250109
  8. CALCIDOSE [Concomitant]
     Indication: Mineral supplementation
     Dates: start: 20250113

REACTIONS (4)
  - Malaise [Recovered/Resolved]
  - Hypotension [Recovered/Resolved]
  - Bradycardia [Recovered/Resolved]
  - Respiratory distress [Recovered/Resolved]

NARRATIVE: CASE EVENT DATE: 20250428
